FAERS Safety Report 7518545-4 (Version None)
Quarter: 2011Q2

REPORT INFORMATION
  Report Type: 
  Country: None (occurrence: None)
  Receive Date: 20110601
  Receipt Date: 20110601
  Transmission Date: 20111010
  Serious: Yes (Life-Threatening, Hospitalization, Other)
  Sender: FDA-Public Use
  Company Number: None

PATIENT
  Age: 17 Year
  Sex: Male
  Weight: 65.7716 kg

DRUGS (3)
  1. PROBIOTIC [Concomitant]
  2. LIALDA [Suspect]
     Indication: CROHN'S DISEASE
     Dosage: 2.4 G QPM PO
     Route: 048
     Dates: start: 20110409, end: 20110506
  3. ACETAMINOPHEN [Concomitant]

REACTIONS (5)
  - TACHYCARDIA [None]
  - PNEUMONITIS [None]
  - PYREXIA [None]
  - COUGH [None]
  - EOSINOPHILIC PNEUMONIA [None]
